FAERS Safety Report 6570959-5 (Version None)
Quarter: 2010Q1

REPORT INFORMATION
  Report Type: 
  Country: None (occurrence: None)
  Receive Date: 20100204
  Receipt Date: 20100125
  Transmission Date: 20100710
  Serious: Yes (Hospitalization)
  Sender: FDA-Public Use
  Company Number: PHHY2010BR04186

PATIENT
  Sex: Male
  Weight: 92 kg

DRUGS (3)
  1. HYGROTON [Suspect]
     Indication: HYPERTENSION
     Dosage: 1 TABLET (50 MG) PER DAY
     Dates: start: 20050101
  2. DIOVAN [Suspect]
     Indication: HYPERTENSION
     Dosage: 1 TABLET (80 MG) PER DAY
     Route: 048
     Dates: start: 20050101
  3. DIOVAN [Suspect]
     Dosage: 160 MG, UNK

REACTIONS (5)
  - BLOOD POTASSIUM DECREASED [None]
  - BLOOD PRESSURE INCREASED [None]
  - CHEST PAIN [None]
  - MUSCLE DISORDER [None]
  - MUSCULAR WEAKNESS [None]
